FAERS Safety Report 4891078-X (Version None)
Quarter: 2006Q1

REPORT INFORMATION
  Report Type: 
  Country: None (occurrence: None)
  Receive Date: 20060125
  Receipt Date: 20050711
  Transmission Date: 20060701
  Serious: Yes (Hospitalization)
  Sender: FDA-Public Use
  Company Number: US-MERCK-0507USA01521

PATIENT
  Age: 61 Year
  Sex: Male
  Weight: 116 kg

DRUGS (2)
  1. VIOXX [Suspect]
     Indication: ARTHRITIS
     Route: 048
     Dates: start: 19990101, end: 20040101
  2. HYZAAR [Concomitant]
     Route: 065

REACTIONS (9)
  - ACUTE MYOCARDIAL INFARCTION [None]
  - ANXIETY [None]
  - ARTERIOSCLEROSIS CORONARY ARTERY [None]
  - DIARRHOEA [None]
  - DIVERTICULITIS [None]
  - GLUCOSE TOLERANCE IMPAIRED [None]
  - HYPERLIPIDAEMIA [None]
  - IRON DEFICIENCY ANAEMIA [None]
  - PELVIC ABSCESS [None]
